FAERS Safety Report 6090750-6 (Version None)
Quarter: 2009Q1

REPORT INFORMATION
  Report Type: 
  Country: None (occurrence: None)
  Receive Date: 20090224
  Receipt Date: 20090202
  Transmission Date: 20090719
  Serious: No
  Sender: FDA-Public Use
  Company Number: US-ABBOTT-09P-163-0501476-00

PATIENT
  Sex: Male
  Weight: 106 kg

DRUGS (9)
  1. SIMCOR [Suspect]
     Indication: BLOOD CHOLESTEROL INCREASED
     Dosage: 1000MG/20MG
     Dates: start: 20080401
  2. RELAFEN [Concomitant]
     Indication: DRUG USE FOR UNKNOWN INDICATION
  3. AVODART [Concomitant]
     Indication: DRUG USE FOR UNKNOWN INDICATION
  4. TESTIM GEL [Concomitant]
     Indication: DRUG USE FOR UNKNOWN INDICATION
  5. VITAMIN D [Concomitant]
     Indication: DRUG USE FOR UNKNOWN INDICATION
  6. ULTRAM [Concomitant]
     Indication: DRUG USE FOR UNKNOWN INDICATION
  7. CYTOMEL [Concomitant]
     Indication: DRUG USE FOR UNKNOWN INDICATION
  8. ARTHROTEC [Concomitant]
     Indication: DRUG USE FOR UNKNOWN INDICATION
  9. MICARDIS [Concomitant]
     Indication: DRUG USE FOR UNKNOWN INDICATION

REACTIONS (1)
  - FLUSHING [None]
